FAERS Safety Report 7117704-2 (Version None)
Quarter: 2010Q4

REPORT INFORMATION
  Report Type: 
  Country: None (occurrence: None)
  Receive Date: 20101123
  Receipt Date: 20101116
  Transmission Date: 20110411
  Serious: Yes (Hospitalization)
  Sender: FDA-Public Use
  Company Number: US-BIOGENIDEC-2010BI040596

PATIENT
  Age: 51 Year
  Sex: Female

DRUGS (1)
  1. AVONEX [Suspect]
     Indication: MULTIPLE SCLEROSIS
     Route: 030
     Dates: start: 19960601

REACTIONS (6)
  - ARTHROPATHY [None]
  - BALANCE DISORDER [None]
  - HYPOAESTHESIA [None]
  - KNEE ARTHROPLASTY [None]
  - TREMOR [None]
  - WRIST FRACTURE [None]
